FAERS Safety Report 8272404-0 (Version None)
Quarter: 2012Q2

REPORT INFORMATION
  Report Type: 
  Country: None (occurrence: None)
  Receive Date: 20120410
  Receipt Date: 20120402
  Transmission Date: 20120825
  Serious: Yes (Hospitalization, Other)
  Sender: FDA-Public Use
  Company Number: TW-PFIZER INC-2012084061

PATIENT
  Age: 21 Year
  Sex: Female

DRUGS (3)
  1. SERTRALINE HYDROCHLORIDE [Interacting]
     Dosage: 50 MG PER DAY
  2. VALPROIC ACID [Interacting]
     Dosage: 500 MG, UNK
  3. VENLAFAXINE HCL [Suspect]
     Dosage: 37.5 MG, UNK

REACTIONS (3)
  - DRUG INTERACTION [None]
  - RHABDOMYOLYSIS [None]
  - DRUG LEVEL DECREASED [None]
